FAERS Safety Report 5642644-5 (Version None)
Quarter: 2008Q1

REPORT INFORMATION
  Report Type: 
  Country: None (occurrence: None)
  Receive Date: 20080227
  Receipt Date: 20080227
  Transmission Date: 20080703
  Serious: Yes (Hospitalization)
  Sender: FDA-Public Use
  Company Number: None

PATIENT
  Sex: Female
  Weight: 61.6892 kg

DRUGS (15)
  1. BACTRIM DS [Suspect]
     Indication: URINARY TRACT INFECTION
     Dosage: ONE PO BID X 10DAYS
     Route: 048
     Dates: start: 20070601
  2. LISINOPRIL [Suspect]
     Indication: HYPERTENSION
     Dosage: 5MG PO QAM
     Route: 048
  3. ASPIRIN [Concomitant]
  4. FUROSEMIDE [Concomitant]
  5. LEXAPRO [Concomitant]
  6. SLO-MAG [Concomitant]
  7. XANAX [Concomitant]
  8. METOPROLOL TARTRATE [Concomitant]
  9. ZOCOR [Concomitant]
  10. ALBUTEROL [Concomitant]
  11. TYLENOL (CAPLET) [Concomitant]
  12. POTASSIUM CHLORIDE [Concomitant]
  13. BACID [Concomitant]
  14. LANTUS [Concomitant]
  15. NOVOLOG [Concomitant]

REACTIONS (2)
  - SWOLLEN TONGUE [None]
  - URTICARIA [None]
